FAERS Safety Report 4331084-7 (Version None)
Quarter: 2004Q2

REPORT INFORMATION
  Report Type: 
  Country: None (occurrence: None)
  Receive Date: 20040405
  Receipt Date: 20040401
  Transmission Date: 20050107
  Serious: Yes (Other)
  Sender: FDA-Public Use
  Company Number: US-BRISTOL-MYERS SQUIBB COMPANY-12547600

PATIENT
  Sex: Female

DRUGS (3)
  1. METFORMIN HCL [Suspect]
  2. LANTUS [Interacting]
  3. ASPIRIN [Interacting]

REACTIONS (2)
  - BLOOD GLUCOSE INCREASED [None]
  - DRUG INTERACTION [None]
